FAERS Safety Report 6842788-6 (Version None)
Quarter: 2010Q3

REPORT INFORMATION
  Report Type: 
  Country: None (occurrence: None)
  Receive Date: 20100714
  Receipt Date: 20070808
  Transmission Date: 20110219
  Serious: No
  Sender: FDA-Public Use
  Company Number: US-PFIZER INC-2007066614

PATIENT
  Sex: Female
  Weight: 49.1 kg

DRUGS (2)
  1. CHANTIX [Suspect]
     Indication: SMOKING CESSATION THERAPY
     Dates: start: 20070807
  2. ADVAIR DISKUS 100/50 [Concomitant]

REACTIONS (1)
  - HEADACHE [None]
